FAERS Safety Report 12190144 (Version 1)
Quarter: 2016Q1

REPORT INFORMATION
  Report Type: Spontaneous
  Country: GB (occurrence: GB)
  Receive Date: 20160318
  Receipt Date: 20160318
  Transmission Date: 20160526
  Serious: Yes (Other)
  Sender: FDA-Public Use
  Company Number: GB-SA-2016SA052003

PATIENT
  Age: 56 Year
  Sex: Male
  Weight: 120 kg

DRUGS (6)
  1. DOXYCYCLINE. [Concomitant]
     Active Substance: DOXYCYCLINE
     Dosage: TAKE TWO CAPSULES NOW, THEN TAKE ONE DAILY FOR A FOLLOWING SIX DAYS DOSE:2 UNIT(S)
     Dates: start: 20160224
  2. ZEROCREAM [Concomitant]
     Dates: start: 20150911
  3. METFORMIN [Concomitant]
     Active Substance: METFORMIN HYDROCHLORIDE
     Dosage: WITH FOOD DOSE:1 UNIT(S)
     Dates: start: 20150911
  4. SILDENAFIL. [Concomitant]
     Active Substance: SILDENAFIL
     Dosage: USE AS DIRECTED
     Dates: start: 20160224
  5. GLIMEPIRIDE. [Suspect]
     Active Substance: GLIMEPIRIDE
     Route: 065
     Dates: start: 20150911
  6. LOSARTAN. [Concomitant]
     Active Substance: LOSARTAN
     Dosage: TAKE ONE DAILY DOSE:1 UNIT(S)
     Dates: start: 20150911

REACTIONS (2)
  - Pain [Unknown]
  - Hypoglycaemia [Recovered/Resolved]

NARRATIVE: CASE EVENT DATE: 20160301
